FAERS Safety Report 5723461-4 (Version None)
Quarter: 2008Q2

REPORT INFORMATION
  Report Type: 
  Country: None (occurrence: None)
  Receive Date: 20080425
  Receipt Date: 20070608
  Transmission Date: 20081010
  Serious: Yes (Other)
  Sender: FDA-Public Use
  Company Number: 2007323574

PATIENT
  Sex: Female

DRUGS (1)
  1. BENADRYL [Suspect]
     Dosage: 20 TABLETS AT ONCE (1 IN 1 D), ORAL
     Route: 048
     Dates: start: 20070608, end: 20070608

REACTIONS (2)
  - OVERDOSE [None]
  - SOMNOLENCE [None]
